FAERS Safety Report 20727067 (Version 3)
Quarter: 2022Q2

REPORT INFORMATION
  Report Type: Report from Study
  Country: US (occurrence: None)
  Receive Date: 20220419
  Receipt Date: 20220609
  Transmission Date: 20220721
  Serious: Yes (Hospitalization, Other)
  Sender: FDA-Public Use
  Company Number: US-ROCHE-3074698

PATIENT
  Weight: 160.02 kg

DRUGS (5)
  1. ATEZOLIZUMAB [Suspect]
     Active Substance: ATEZOLIZUMAB
     Indication: Adenocarcinoma of colon
     Dosage: LAST ADMINISTRATION DATE: 20/JUL/2021
     Route: 042
     Dates: start: 20210209
  2. FLUOROURACIL [Suspect]
     Active Substance: FLUOROURACIL
     Indication: Adenocarcinoma of colon
     Dosage: 400MG/M2 IV BOLUS ON DAY 1 FOLLOWED BY 2400MG/M2 IV OVER 46 HOURS DAY 1-3?LAST ADMINISTRATION DATE:
     Route: 040
     Dates: start: 20210209
  3. LEUCOVORIN CALCIUM [Suspect]
     Active Substance: LEUCOVORIN CALCIUM
     Indication: Adenocarcinoma of colon
     Dosage: 400MG/M2 IV OVER 2 HOURS ON DAY 1?LAST DOSE: 20/JUL/2021
     Route: 042
     Dates: start: 20210209
  4. OXALIPLATIN [Suspect]
     Active Substance: OXALIPLATIN
     Indication: Adenocarcinoma of colon
     Dosage: 85MG/M2 IV OVER 2 HOURS ON DAY 1?LAST DOSE: 20/JUL/2021
     Route: 042
     Dates: start: 20210209
  5. ELIQUIS [Concomitant]
     Active Substance: APIXABAN

REACTIONS (4)
  - Enterocolitis infectious [Unknown]
  - Platelet count decreased [Recovered/Resolved with Sequelae]
  - Anaemia [Recovered/Resolved]
  - Clostridium test positive [Unknown]

NARRATIVE: CASE EVENT DATE: 20210728
